FAERS Safety Report 9471099 (Version 2)
Quarter: 2014Q1

REPORT INFORMATION
  Report Type: Spontaneous
  Country: US (occurrence: US)
  Receive Date: 20130822
  Receipt Date: 20140205
  Transmission Date: 20141002
  Serious: Yes (Hospitalization)
  Sender: FDA-Public Use
  Company Number: US-B.I. PHARMACEUTICALS,INC./RIDGEFIELD-2013-BI-25635BP

PATIENT
  Sex: Male
  Weight: 88.45 kg

DRUGS (14)
  1. PRADAXA [Suspect]
     Indication: ANTICOAGULANT THERAPY
     Dates: start: 20120726, end: 20130122
  2. PRADAXA [Suspect]
     Indication: ATRIAL FIBRILLATION
  3. ALLEGRA [Concomitant]
  4. COREG [Concomitant]
     Dates: start: 2009
  5. LIPITOR [Concomitant]
  6. ASPIRIN [Concomitant]
  7. CILOSTAZOL [Concomitant]
  8. DILTIAZEM [Concomitant]
     Dates: start: 2012
  9. FAMOTIDINE [Concomitant]
  10. HYDROCHLOROTHIAZIDE [Concomitant]
     Dates: start: 2011
  11. PREDNISONE [Concomitant]
  12. PROMETHAZINE [Concomitant]
  13. DOXAZOSIN [Concomitant]
     Dates: start: 2004
  14. RAMIPRIL [Concomitant]
     Dates: start: 2008

REACTIONS (3)
  - Gastrointestinal haemorrhage [Unknown]
  - Acute myocardial infarction [Unknown]
  - Anaemia [Unknown]
